FAERS Safety Report 25255372 (Version 1)
Quarter: 2025Q2

REPORT INFORMATION
  Report Type: Spontaneous
  Country: US (occurrence: US)
  Receive Date: 20250430
  Receipt Date: 20250430
  Transmission Date: 20250716
  Serious: No
  Sender: HIKMA
  Company Number: US-HIKMA PHARMACEUTICALS USA INC.-US-H14001-24-06840

PATIENT
  Age: 69 Year
  Sex: Female

DRUGS (4)
  1. PREDNISONE [Suspect]
     Active Substance: PREDNISONE
     Indication: Pruritus
     Route: 065
  2. LENVIMA [Concomitant]
     Active Substance: LENVATINIB
     Indication: Endometrial cancer
     Dosage: 10 MILLIGRAM, QD
     Route: 065
     Dates: start: 20240127
  3. LENVIMA [Concomitant]
     Active Substance: LENVATINIB
     Dosage: 8 MILLIGRAM, QD
     Route: 065
     Dates: start: 202403
  4. LENVIMA [Concomitant]
     Active Substance: LENVATINIB
     Dosage: 8 MILLIGRAM, QD
     Route: 065
     Dates: start: 20240515

REACTIONS (1)
  - Weight increased [Unknown]
